FAERS Safety Report 20874936 (Version 2)
Quarter: 2023Q1

REPORT INFORMATION
  Report Type: Spontaneous
  Country: US (occurrence: US)
  Receive Date: 20220526
  Receipt Date: 20230225
  Transmission Date: 20230417
  Serious: No
  Sender: FDA-Public Use
  Company Number: US-BANNER LIFE SCIENCES, LLC-2022BAN000112

PATIENT

DRUGS (1)
  1. BAFIERTAM [Suspect]
     Active Substance: MONOMETHYL FUMARATE
     Indication: Multiple sclerosis
     Dosage: 190 MG, BID
     Route: 048
     Dates: start: 20220412

REACTIONS (5)
  - Constipation [Unknown]
  - Asthenia [Unknown]
  - Sleep disorder [Unknown]
  - Haemorrhagic disorder [Unknown]
  - Skin laceration [Unknown]

NARRATIVE: CASE EVENT DATE: 20220101
